FAERS Safety Report 7984460-5 (Version None)
Quarter: 2011Q4

REPORT INFORMATION
  Report Type: 
  Country: None (occurrence: None)
  Receive Date: 20111216
  Receipt Date: 20111206
  Transmission Date: 20120403
  Serious: Yes (Hospitalization, Other)
  Sender: FDA-Public Use
  Company Number: US-BAYER-2011-029316

PATIENT
  Age: 24 Year
  Sex: Female
  Weight: 66 kg

DRUGS (10)
  1. ALBUTEROL [Concomitant]
     Indication: ASTHMA
     Dosage: 2 DF, UNK
     Route: 055
     Dates: start: 19880101
  2. AMOXICILLIN AND CLAVULANATE POTASSIUM [Concomitant]
     Dosage: 875 MG, BID
     Route: 048
  3. SINGULAIR [Concomitant]
     Dosage: 10 MG, QD
     Route: 048
  4. YAZ [Suspect]
     Indication: ACNE
     Dosage: UNK
     Dates: start: 20051001, end: 20081201
  5. IMITREX [Concomitant]
     Dosage: 100 MG, UNK
  6. ALESSE [Concomitant]
     Dosage: UNK
     Dates: start: 20090101
  7. AUGMENTIN [Concomitant]
     Dosage: UNK
     Dates: start: 20090321
  8. YASMIN [Suspect]
     Indication: ACNE
     Dosage: UNK
     Dates: start: 20051001, end: 20081201
  9. MULTI-VITAMINS [Concomitant]
     Dosage: 1 DF, QD
     Route: 048
     Dates: start: 20090321
  10. DROSPIRENONE AND ETHINYL ESTRADIOL [Suspect]
     Indication: ACNE
     Dosage: UNK
     Dates: start: 20051001, end: 20081201

REACTIONS (8)
  - CHOLECYSTITIS CHRONIC [None]
  - GALLBLADDER DISORDER [None]
  - ABDOMINAL PAIN [None]
  - INJURY [None]
  - PAIN [None]
  - EMOTIONAL DISTRESS [None]
  - GENERAL PHYSICAL HEALTH DETERIORATION [None]
  - ANXIETY [None]
